FAERS Safety Report 10163228 (Version 4)
Quarter: 2014Q2

REPORT INFORMATION
  Report Type: Spontaneous
  Country: JP (occurrence: JP)
  Receive Date: 20140509
  Receipt Date: 20140530
  Transmission Date: 20141212
  Serious: Yes (Life-Threatening)
  Sender: FDA-Public Use
  Company Number: JP-AMGEN-JPNSP2014033482

PATIENT
  Age: 81 Year
  Sex: Female

DRUGS (10)
  1. NESP [Suspect]
     Indication: NEPHROGENIC ANAEMIA
     Dosage: 60 MUG, UNK
     Route: 065
     Dates: start: 20121115, end: 20140424
  2. SENNARIDE [Concomitant]
     Dosage: 12 MG, UNK
     Route: 048
  3. LANSOPRAZOLE [Concomitant]
     Dosage: 15 MG, UNK
     Route: 048
  4. RISUMIC [Concomitant]
     Dosage: 10 MG, UNK
     Route: 048
  5. GASLON [Concomitant]
     Dosage: 4 MG, UNK
     Route: 048
  6. REMITCH [Concomitant]
     Dosage: 2.5 MUG, UNK
  7. ALEVIATIN                          /00017401/ [Concomitant]
     Dosage: 100 MG, UNK
     Route: 048
  8. TICLOPIDINE HYDROCHLORIDE [Concomitant]
     Dosage: 100 MG, UNK
     Route: 048
  9. ZOLPIDEM TARTRATE [Concomitant]
     Dosage: 5 MG, UNK
     Route: 048
  10. DIOVAN [Concomitant]
     Dosage: 80 MG, UNK
     Route: 048

REACTIONS (1)
  - Aplasia pure red cell [Recovering/Resolving]
